FAERS Safety Report 15488444 (Version 2)
Quarter: 2019Q1

REPORT INFORMATION
  Report Type: Spontaneous
  Country: US (occurrence: US)
  Receive Date: 20181011
  Receipt Date: 20190114
  Transmission Date: 20190417
  Serious: No
  Sender: FDA-Public Use
  Company Number: US-ABBVIE-18K-163-2508053-00

PATIENT
  Sex: Male

DRUGS (5)
  1. VENETOCLAX. [Suspect]
     Active Substance: VENETOCLAX
     Indication: CHRONIC LYMPHOCYTIC LEUKAEMIA
     Route: 048
  2. IMBRUVICA [Suspect]
     Active Substance: IBRUTINIB
     Indication: CHRONIC LYMPHOCYTIC LEUKAEMIA
     Route: 048
     Dates: start: 20150904
  3. VENETOCLAX. [Suspect]
     Active Substance: VENETOCLAX
     Dosage: DECREASED DOSE
     Route: 048
  4. IMBRUVICA [Suspect]
     Active Substance: IBRUTINIB
     Route: 048
     Dates: start: 20180806
  5. IMBRUVICA [Suspect]
     Active Substance: IBRUTINIB
     Dosage: DECREASED DOSE
     Route: 048

REACTIONS (3)
  - Flatulence [Recovered/Resolved]
  - Faeces soft [Recovered/Resolved]
  - Abdominal discomfort [Unknown]
